FAERS Safety Report 5018429-X (Version None)
Quarter: 2006Q2

REPORT INFORMATION
  Report Type: 
  Country: None (occurrence: None)
  Receive Date: 20060530
  Receipt Date: 20060517
  Transmission Date: 20061013
  Serious: Yes (Hospitalization)
  Sender: FDA-Public Use
  Company Number: 2006BH010035

PATIENT
  Age: 2 Month
  Sex: Male

DRUGS (1)
  1. LACTATED RINGER'S AND DEXTROSE 5% IN PLASTIC CONTAINER [Suspect]
     Dosage: 800 ML; AS NEEDED;IV
     Route: 042
     Dates: start: 20060404, end: 20060405

REACTIONS (5)
  - ACIDOSIS [None]
  - CATHETER RELATED COMPLICATION [None]
  - HYPERTENSION [None]
  - VOMITING [None]
  - WEIGHT INCREASED [None]
